FAERS Safety Report 5638288-1 (Version None)
Quarter: 2008Q1

REPORT INFORMATION
  Report Type: 
  Country: None (occurrence: None)
  Receive Date: 20080226
  Receipt Date: 20080226
  Transmission Date: 20080703
  Serious: Yes (Hospitalization)
  Sender: FDA-Public Use
  Company Number: None

PATIENT
  Sex: Male
  Weight: 80.7403 kg

DRUGS (1)
  1. HEPARIN [Suspect]

REACTIONS (3)
  - DRUG HYPERSENSITIVITY [None]
  - HEART RATE DECREASED [None]
  - HYPOTENSION [None]
